FAERS Safety Report 6041036-7 (Version None)
Quarter: 2009Q1

REPORT INFORMATION
  Report Type: 
  Country: None (occurrence: None)
  Receive Date: 20090116
  Receipt Date: 20080731
  Transmission Date: 20090719
  Serious: No
  Sender: FDA-Public Use
  Company Number: US-BRISTOL-MYERS SQUIBB COMPANY-14284491

PATIENT
  Age: 67 Year
  Sex: Female

DRUGS (18)
  1. ABILIFY [Suspect]
     Indication: DEPRESSION
     Dates: start: 20080715
  2. ABILIFY [Suspect]
     Indication: ANXIETY
     Dates: start: 20080715
  3. SYNTHROID [Concomitant]
  4. MIRAPEX [Concomitant]
  5. TORSEMIDE [Concomitant]
  6. METFORMIN [Concomitant]
  7. BENICAR [Concomitant]
  8. NORVASC [Concomitant]
  9. LIPITOR [Concomitant]
  10. PROZAC [Concomitant]
  11. TRAZODONE HCL [Concomitant]
     Dosage: INITIATED AT 100MG.DURATION:5-6YRS 50 MG AT THE TIME OF REPORT
  12. CLORAZEPATE DIPOTASSIUM [Concomitant]
  13. ELAVIL [Concomitant]
  14. METHYLPHENIDATE HCL [Concomitant]
  15. EFFEXOR [Concomitant]
  16. FIORINAL [Concomitant]
  17. FIORINAL W/CODEINE [Concomitant]
  18. ADVIL LIQUI-GELS [Concomitant]

REACTIONS (4)
  - DIARRHOEA [None]
  - FATIGUE [None]
  - HEADACHE [None]
  - PNEUMONIA [None]
